FAERS Safety Report 25569464 (Version 1)
Quarter: 2025Q3

REPORT INFORMATION
  Report Type: Spontaneous
  Country: CN (occurrence: CN)
  Receive Date: 20250716
  Receipt Date: 20250716
  Transmission Date: 20251021
  Serious: Yes (Hospitalization, Disabling, Other)
  Sender: JOHNSON AND JOHNSON
  Company Number: CN-JNJFOC-20250708909

PATIENT
  Age: 11 Year
  Sex: Female
  Weight: 50 kg

DRUGS (2)
  1. RISPERDAL [Suspect]
     Active Substance: RISPERIDONE
     Indication: Behaviour disorder
     Dosage: THERAPY END DATE WAS ON 02-JUL-2025
     Route: 048
     Dates: start: 20250620
  2. RISPERDAL [Suspect]
     Active Substance: RISPERIDONE
     Route: 048
     Dates: start: 20250703, end: 20250703

REACTIONS (10)
  - Intentional overdose [Recovering/Resolving]
  - Amaurosis fugax [Recovering/Resolving]
  - Syncope [Recovering/Resolving]
  - Extrapyramidal disorder [Recovering/Resolving]
  - Hyperprolactinaemia [Recovering/Resolving]
  - Toothache [Recovering/Resolving]
  - Dizziness [Recovering/Resolving]
  - Dry mouth [Recovering/Resolving]
  - Feeling of body temperature change [Recovering/Resolving]
  - Sinus tachycardia [Recovering/Resolving]

NARRATIVE: CASE EVENT DATE: 20250703
